FAERS Safety Report 20899547 (Version 3)
Quarter: 2022Q2

REPORT INFORMATION
  Report Type: Report from Study
  Country: CO (occurrence: CO)
  Receive Date: 20220601
  Receipt Date: 20220615
  Transmission Date: 20220721
  Serious: Yes (Hospitalization, Other)
  Sender: FDA-Public Use
  Company Number: CO-NOVARTISPH-NVSC2022CO123539

PATIENT
  Age: 49 Year
  Sex: Male
  Weight: 86 kg

DRUGS (4)
  1. COSENTYX [Suspect]
     Active Substance: SECUKINUMAB
     Indication: Psoriasis
     Dosage: 300 MG, QMO (AMPOULE)(START DATE 4 YEARS AGO)
     Route: 058
  2. COSENTYX [Suspect]
     Active Substance: SECUKINUMAB
     Dosage: 300 MG, Q2W(START DATE 2 YEARS AGO)
     Route: 058
     Dates: start: 202201
  3. METFORMIN [Suspect]
     Active Substance: METFORMIN HYDROCHLORIDE
     Indication: Hyperglycaemia
     Dosage: UNK UNK, QD(EVERY 24 HOURS)
     Route: 065
     Dates: start: 202112
  4. LOSARTAN [Suspect]
     Active Substance: LOSARTAN
     Indication: Hypertension
     Dosage: 50 MG, BID(EVERY 12 HOURS)(START DATE 5 YEARS DOES NOT REPORT EXACT DATE)
     Route: 048

REACTIONS (10)
  - Accident [Unknown]
  - Burns second degree [Unknown]
  - Skin lesion [Unknown]
  - Pain [Unknown]
  - Weight decreased [Unknown]
  - Haemorrhage [Unknown]
  - Psoriasis [Unknown]
  - Pruritus [Unknown]
  - Scratch [Unknown]
  - Inappropriate schedule of product administration [Unknown]

NARRATIVE: CASE EVENT DATE: 20220501
